FAERS Safety Report 19890837 (Version 2)
Quarter: 2021Q4

REPORT INFORMATION
  Report Type: Spontaneous
  Country: US (occurrence: US)
  Receive Date: 20210928
  Receipt Date: 20211008
  Transmission Date: 20220303
  Serious: Yes (Other)
  Sender: FDA-Public Use
  Company Number: US-MLMSERVICE-20210915-3107939-1

PATIENT
  Age: 58 Year
  Sex: Male

DRUGS (6)
  1. VINCRISTINE SULFATE [Suspect]
     Active Substance: VINCRISTINE SULFATE
     Indication: Sarcoma
     Dosage: UNK UNK, CYCLIC
  2. ETOPOSIDE [Suspect]
     Active Substance: ETOPOSIDE
     Indication: Sarcoma
     Dosage: UNK, CYCLIC
  3. IFOSFAMIDE [Suspect]
     Active Substance: IFOSFAMIDE
     Indication: Sarcoma
     Dosage: UNK, CYCLIC
  4. CYCLOPHOSPHAMIDE [Suspect]
     Active Substance: CYCLOPHOSPHAMIDE
     Indication: Sarcoma
     Dosage: UNK, CYCLIC
  5. DACTINOMYCIN [Suspect]
     Active Substance: DACTINOMYCIN
     Indication: Sarcoma
     Dosage: UNK, CYCLIC
  6. PAZOPANIB [Concomitant]
     Active Substance: PAZOPANIB
     Indication: Sarcoma
     Dosage: 400 MG, 1X/DAY

REACTIONS (1)
  - Toxicity to various agents [Unknown]
